FAERS Safety Report 10223330 (Version 1)
Quarter: 2014Q2

REPORT INFORMATION
  Report Type: Spontaneous
  Country: US (occurrence: US)
  Receive Date: 20140609
  Receipt Date: 20140609
  Transmission Date: 20141212
  Serious: No
  Sender: FDA-Public Use
  Company Number: US-ASTRAZENECA-2014SE37270

PATIENT
  Sex: Female

DRUGS (1)
  1. SEROQUEL IR [Suspect]
     Route: 048
     Dates: start: 201405, end: 201405

REACTIONS (1)
  - Cyanopsia [Unknown]
